FAERS Safety Report 9727451 (Version 1)
Quarter: 2013Q4

REPORT INFORMATION
  Report Type: Spontaneous
  Country: DE (occurrence: DE)
  Receive Date: 20131203
  Receipt Date: 20131203
  Transmission Date: 20140711
  Serious: Yes (Other)
  Sender: FDA-Public Use
  Company Number: DE-WATSON-2013-22047

PATIENT
  Sex: Male
  Weight: 3.48 kg

DRUGS (3)
  1. CITALOPRAM (UNKNOWN) [Suspect]
     Indication: DEPRESSION
     Dosage: 20 MG, DAILY
     Route: 064
     Dates: start: 20120131, end: 20121030
  2. AZITHROMYCIN [Concomitant]
     Indication: GYNAECOLOGICAL CHLAMYDIA INFECTION
     Dosage: 500 MG, DAILY
     Route: 064
  3. SPIROPENT [Concomitant]
     Indication: PREMATURE LABOUR
     Dosage: 0.02 MG, BID
     Route: 064
     Dates: start: 20120922, end: 20121009

REACTIONS (4)
  - Hyperbilirubinaemia neonatal [Recovered/Resolved]
  - Convulsion neonatal [Unknown]
  - Haemolytic anaemia [Recovered/Resolved]
  - Foetal exposure during pregnancy [Recovered/Resolved]
